FAERS Safety Report 6682743-2 (Version None)
Quarter: 2010Q2

REPORT INFORMATION
  Report Type: 
  Country: None (occurrence: None)
  Receive Date: 20100415
  Receipt Date: 20100412
  Transmission Date: 20101027
  Serious: Yes (Hospitalization)
  Sender: FDA-Public Use
  Company Number: US-ELI_LILLY_AND_COMPANY-US201003007975

PATIENT
  Sex: Female

DRUGS (6)
  1. HUMALOG [Suspect]
     Dosage: UNK, AS NEEDED
     Dates: end: 20080101
  2. HUMALOG [Suspect]
     Dosage: 6 U, 3/D
     Dates: start: 20080101, end: 20100301
  3. HUMALOG [Suspect]
     Dosage: 6 U, 3/D
     Dates: start: 20100301
  4. LANTUS [Concomitant]
     Indication: TYPE 1 DIABETES MELLITUS
     Dosage: 5 U, 2/D
     Dates: start: 20080101, end: 20100101
  5. LANTUS [Concomitant]
     Dosage: 8 U, EACH MORNING
     Dates: start: 20100101
  6. LANTUS [Concomitant]
     Dosage: 8 U, EACH EVENING
     Dates: start: 20100101

REACTIONS (2)
  - BLOOD GLUCOSE INCREASED [None]
  - INCORRECT STORAGE OF DRUG [None]
